FAERS Safety Report 8519355-1 (Version None)
Quarter: 2012Q3

REPORT INFORMATION
  Report Type: 
  Country: None (occurrence: None)
  Receive Date: 20120718
  Receipt Date: 20120712
  Transmission Date: 20120928
  Serious: Yes (Hospitalization)
  Sender: FDA-Public Use
  Company Number: JP-EISAI INC-E2090-02062-SPO-JP

PATIENT
  Sex: Male

DRUGS (2)
  1. CORTROSYN Z [Suspect]
     Indication: LENNOX-GASTAUT SYNDROME
     Route: 030
     Dates: start: 20110719, end: 20110816
  2. ZONISAMIDE [Suspect]
     Indication: LENNOX-GASTAUT SYNDROME
     Route: 048
     Dates: start: 20110809, end: 20110819

REACTIONS (2)
  - POSTRENAL FAILURE [None]
  - CALCULUS URINARY [None]
